FAERS Safety Report 7901739-3 (Version None)
Quarter: 2011Q4

REPORT INFORMATION
  Report Type: 
  Country: None (occurrence: None)
  Receive Date: 20111108
  Receipt Date: 20111103
  Transmission Date: 20120403
  Serious: Yes (Death, Other)
  Sender: FDA-Public Use
  Company Number: US-AMGEN-USASP2011016973

PATIENT
  Sex: Male

DRUGS (1)
  1. NPLATE [Suspect]
     Indication: IDIOPATHIC THROMBOCYTOPENIC PURPURA
     Dosage: 1.37 MUG/KG, UNK
     Dates: start: 20101011, end: 20101116

REACTIONS (3)
  - HAEMATOLOGICAL MALIGNANCY [None]
  - DEATH [None]
  - DRUG INEFFECTIVE [None]
